FAERS Safety Report 15021120 (Version 1)
Quarter: 2018Q2

REPORT INFORMATION
  Report Type: Spontaneous
  Country: US (occurrence: US)
  Receive Date: 20180618
  Receipt Date: 20180618
  Transmission Date: 20180711
  Serious: Yes (Other)
  Sender: FDA-Public Use
  Company Number: US-NAPPMUNDI-USA-2018-0143911

PATIENT
  Sex: Female

DRUGS (2)
  1. MS CONTIN [Suspect]
     Active Substance: MORPHINE SULFATE
     Indication: THORACIC OUTLET SYNDROME
     Dosage: 15 MG, BID
     Route: 048
  2. MS CONTIN [Suspect]
     Active Substance: MORPHINE SULFATE
     Indication: INJURY
     Dosage: 100 MG, DAILY
     Route: 048
     Dates: start: 2007, end: 2012

REACTIONS (2)
  - Tooth fracture [Recovered/Resolved]
  - Tooth abscess [Recovered/Resolved]
